FAERS Safety Report 9423749 (Version 1)
Quarter: 2013Q3

REPORT INFORMATION
  Report Type: Spontaneous
  Country: AU (occurrence: AU)
  Receive Date: 20130728
  Receipt Date: 20130728
  Transmission Date: 20140515
  Serious: Yes (Other)
  Sender: FDA-Public Use
  Company Number: PHHY2013AU078622

PATIENT
  Sex: Female

DRUGS (5)
  1. VOLTAREN [Suspect]
     Dosage: UNK UKN, UNK
  2. ZOMETA [Suspect]
     Dosage: UNK UKN, UNK
  3. PACLITAXEL [Suspect]
     Dosage: UNK UKN, UNK
  4. CARBOPLATIN [Suspect]
     Dosage: UNK UKN, UNK
  5. NEXIUM//ESOMEPRAZOLE MAGNESIUM [Suspect]
     Dosage: UNK UKN, UNK

REACTIONS (2)
  - Febrile neutropenia [Unknown]
  - Diarrhoea [Unknown]
